FAERS Safety Report 18931691 (Version 1)
Quarter: 2021Q1

REPORT INFORMATION
  Report Type: Spontaneous
  Country: CN (occurrence: CN)
  Receive Date: 20210224
  Receipt Date: 20210224
  Transmission Date: 20210420
  Serious: Yes (Other)
  Sender: FDA-Public Use
  Company Number: CN-009507513-2102CHN008013

PATIENT
  Age: 85 Year
  Sex: Male
  Weight: 56 kg

DRUGS (1)
  1. TIENAM [Suspect]
     Active Substance: CILASTATIN SODIUM\IMIPENEM
     Indication: PNEUMONIA ASPIRATION
     Dosage: 1 GRAM, BID (ALSO REPORTED AS Q12H); FORMULATION: POWDER FOR INJECTION
     Route: 041
     Dates: start: 20201220, end: 20210106

REACTIONS (4)
  - Electrolyte imbalance [Unknown]
  - Diarrhoea [Recovering/Resolving]
  - Shock [Unknown]
  - Hypokalaemia [Unknown]

NARRATIVE: CASE EVENT DATE: 20210105
